FAERS Safety Report 22054764 (Version 1)
Quarter: 2023Q1

REPORT INFORMATION
  Report Type: Spontaneous
  Country: US (occurrence: US)
  Receive Date: 20230302
  Receipt Date: 20230302
  Transmission Date: 20230418
  Serious: No
  Sender: FDA-Public Use
  Company Number: US-PFIZER INC-202300089646

PATIENT
  Age: 52 Year
  Sex: Female

DRUGS (4)
  1. PAXLOVID [Suspect]
     Active Substance: NIRMATRELVIR\RITONAVIR
     Indication: COVID-19 treatment
     Dosage: UNK
     Dates: start: 20230220, end: 20230224
  2. ZYRTEC [Concomitant]
     Active Substance: CETIRIZINE HYDROCHLORIDE
     Dosage: UNK
     Dates: start: 201601
  3. VITAFUSION VITAMIN D3 [Concomitant]
     Dosage: UNK
     Dates: start: 202101
  4. FERRASORB [CALCIUM FOLINATE;CALCIUM MEFOLINATE;CYANOCOBALAMIN;IRON PIC [Concomitant]
     Dosage: UNK
     Dates: start: 202208

REACTIONS (2)
  - COVID-19 [Recovering/Resolving]
  - Disease recurrence [Recovering/Resolving]

NARRATIVE: CASE EVENT DATE: 20230228
